FAERS Safety Report 23691480 (Version 1)
Quarter: 2024Q2

REPORT INFORMATION
  Report Type: Spontaneous
  Country: DE (occurrence: DE)
  Receive Date: 20240401
  Receipt Date: 20240401
  Transmission Date: 20240716
  Serious: Yes (Other)
  Sender: FDA-Public Use
  Company Number: DE-AMK-272261

PATIENT
  Age: 82 Year
  Sex: Male
  Weight: 80 kg

DRUGS (11)
  1. MEROPENEM [Suspect]
     Active Substance: MEROPENEM
     Indication: Pneumonia
     Dosage: 1 DOSAGE FORM, 3 TIMES A DAY (1-1-1)
     Route: 042
     Dates: start: 20231218, end: 20231227
  2. PIPERACILLIN SODIUM\TAZOBACTAM SODIUM [Suspect]
     Active Substance: PIPERACILLIN SODIUM\TAZOBACTAM SODIUM
     Indication: Pneumonia
     Dosage: 1 DOSAGE FORM, 3 TIMES A DAY (1-1-1)
     Route: 042
     Dates: start: 20231216, end: 20231218
  3. CERTOPARIN SODIUM [Concomitant]
     Active Substance: CERTOPARIN SODIUM
     Indication: Product used for unknown indication
     Dosage: 1 DOSAGE FORM, ONCE A DAY (0-0-1 PRE-FILLED SYRINGE)
     Route: 058
     Dates: start: 20231213, end: 20240103
  4. ACTRAPID [Concomitant]
     Active Substance: INSULIN HUMAN
     Indication: Product used for unknown indication
     Dosage: 96 INTERNATIONAL UNIT, ONCE A DAY
     Route: 065
  5. METAMIZOLE [Concomitant]
     Active Substance: METAMIZOLE
     Indication: Product used for unknown indication
     Dosage: 1000 MILLIGRAM, FOUR TIMES/DAY (2-2-2-2)
     Route: 048
     Dates: start: 20231213, end: 20231225
  6. DONEPEZIL [Concomitant]
     Active Substance: DONEPEZIL
     Indication: Product used for unknown indication
     Dosage: 5 MILLIGRAM, ONCE A DAY (0-0-1-0)
     Route: 048
     Dates: start: 20231213, end: 20240103
  7. PROPOFOL [Concomitant]
     Active Substance: PROPOFOL
     Indication: Product used for unknown indication
     Dosage: UNK
     Route: 065
     Dates: start: 20231213, end: 20231225
  8. SODIUM PICOSULFATE [Concomitant]
     Active Substance: SODIUM PICOSULFATE
     Indication: Product used for unknown indication
     Dosage: 20 GTT DROPS, AS NECESSARY ( 20?-0-0 IF NECESSARY)
     Route: 048
     Dates: start: 20231213, end: 20240103
  9. BISACODYL [Concomitant]
     Active Substance: BISACODYL
     Indication: Product used for unknown indication
     Dosage: 1 DOSAGE FORM, AS NECESSARY (1-0-0 IF NECESSARY)
     Route: 054
     Dates: start: 20231213, end: 20240103
  10. POLYETHYLENE GLYCOLS [Concomitant]
     Active Substance: POLYETHYLENE GLYCOLS
     Indication: Product used for unknown indication
     Dosage: UNK ( BAG)
     Route: 048
     Dates: start: 20231213, end: 20240103
  11. INSULIN HUMAN [Concomitant]
     Active Substance: INSULIN HUMAN
     Indication: Product used for unknown indication
     Dosage: 44 INTERNATIONAL UNIT, ONCE A DAY (20-0-24 IE)
     Route: 058
     Dates: start: 20231213, end: 20240103

REACTIONS (2)
  - Hypernatraemia [Recovered/Resolved]
  - Hypokalaemia [Recovered/Resolved]

NARRATIVE: CASE EVENT DATE: 20231201
